FAERS Safety Report 7552799-3 (Version None)
Quarter: 2011Q2

REPORT INFORMATION
  Report Type: 
  Country: None (occurrence: None)
  Receive Date: 20110616
  Receipt Date: 20110608
  Transmission Date: 20111010
  Serious: Yes (Other)
  Sender: FDA-Public Use
  Company Number: PHHY2011IE12348

PATIENT
  Age: 73 Year
  Sex: Female

DRUGS (7)
  1. XANAX [Concomitant]
     Dosage: 250 MG, UNK
  2. CALCIUM CARBONATE [Concomitant]
  3. ZOLPIDEM [Concomitant]
  4. AMOCLAV DUO [Suspect]
     Indication: DYSURIA
     Dosage: 1 DF, BID
     Route: 048
     Dates: start: 20110120, end: 20110120
  5. LIPITOR [Concomitant]
  6. CENTYL K [Concomitant]
  7. PLAVIX [Concomitant]

REACTIONS (2)
  - PAIN [None]
  - MUSCLE SPASMS [None]
